FAERS Safety Report 12270455 (Version 1)
Quarter: 2016Q2

REPORT INFORMATION
  Report Type: Spontaneous
  Country: US (occurrence: None)
  Receive Date: 20160414
  Receipt Date: 20160414
  Transmission Date: 20160815
  Serious: No
  Sender: FDA-Public Use
  Company Number: None

PATIENT
  Age: 4 Year
  Sex: Male
  Weight: 15.88 kg

DRUGS (1)
  1. EPIPEN JR [Suspect]
     Active Substance: EPINEPHRINE

REACTIONS (5)
  - Injury associated with device [None]
  - Accidental exposure to product by child [None]
  - Injection site pain [None]
  - Injection site haemorrhage [None]
  - Injection site pallor [None]

NARRATIVE: CASE EVENT DATE: 20160412
